APPROVED DRUG PRODUCT: TYLENOL W/ CODEINE
Active Ingredient: ACETAMINOPHEN; CODEINE PHOSPHATE
Strength: 120MG/5ML;12MG/5ML
Dosage Form/Route: SOLUTION;ORAL
Application: A085057 | Product #001
Applicant: ORTHO MCNEIL PHARMACEUTICAL INC
Approved: Approved Prior to Jan 1, 1982 | RLD: Yes | RS: No | Type: DISCN